FAERS Safety Report 21629948 (Version 2)
Quarter: 2022Q4

REPORT INFORMATION
  Report Type: Spontaneous
  Country: CA (occurrence: CA)
  Receive Date: 20221122
  Receipt Date: 20221229
  Transmission Date: 20230113
  Serious: No
  Sender: FDA-Public Use
  Company Number: CA-ALK-ABELLO A/S-2022AA003857

PATIENT

DRUGS (4)
  1. ALLERGENIC EXTRACT- PEANUT ARACHIS HYPOGAEA [Suspect]
     Active Substance: ALLERGENIC EXTRACT- PEANUT ARACHIS HYPOGAEA
     Indication: Diagnostic procedure
     Dosage: UNK
     Dates: start: 20221018
  2. FLOVENT [Concomitant]
     Active Substance: FLUTICASONE PROPIONATE
  3. ALBUTEROL SULFATE [Concomitant]
     Active Substance: ALBUTEROL SULFATE
  4. PEG [MACROGOL] [Concomitant]

REACTIONS (2)
  - Local reaction [Recovered/Resolved]
  - False negative investigation result [Unknown]

NARRATIVE: CASE EVENT DATE: 20221018
